FAERS Safety Report 6701520-7 (Version None)
Quarter: 2010Q2

REPORT INFORMATION
  Report Type: 
  Country: None (occurrence: None)
  Receive Date: 20100429
  Receipt Date: 20100423
  Transmission Date: 20101027
  Serious: Yes (Hospitalization)
  Sender: FDA-Public Use
  Company Number: FR-JNJFOC-20100406412

PATIENT
  Sex: Female

DRUGS (4)
  1. HALDOL [Suspect]
     Indication: AGITATION
     Route: 048
     Dates: start: 20100325, end: 20100329
  2. MEMANTINE HCL [Suspect]
     Indication: DEMENTIA
     Route: 048
  3. NEXIUM [Concomitant]
     Route: 065
  4. COVERSYL [Concomitant]
     Route: 065

REACTIONS (2)
  - CONVULSION [None]
  - ENCEPHALOPATHY [None]
